FAERS Safety Report 8062467-X (Version None)
Quarter: 2012Q1

REPORT INFORMATION
  Report Type: 
  Country: None (occurrence: None)
  Receive Date: 20120123
  Receipt Date: 20120120
  Transmission Date: 20120608
  Serious: No
  Sender: FDA-Public Use
  Company Number: US-BAYER-2012-006602

PATIENT
  Sex: Female

DRUGS (2)
  1. MIRENA [Suspect]
  2. MIRENA [Suspect]
     Dosage: 20 MCG/24HR, CONT

REACTIONS (2)
  - AMENORRHOEA [None]
  - LIBIDO DECREASED [None]
